FAERS Safety Report 6337901-3 (Version None)
Quarter: 2009Q3

REPORT INFORMATION
  Report Type: 
  Country: None (occurrence: None)
  Receive Date: 20090902
  Receipt Date: 20090827
  Transmission Date: 20100115
  Serious: Yes (Hospitalization)
  Sender: FDA-Public Use
  Company Number: US-KINGPHARMUSA00001-K200901058

PATIENT
  Age: 71 Year
  Sex: Male

DRUGS (2)
  1. ALTACE [Suspect]
     Dosage: 2.5 MG, QD
  2. VEROSPIRON [Suspect]
     Dosage: 25 MG, BID

REACTIONS (2)
  - BRADYCARDIA [None]
  - HYPERKALAEMIA [None]
